FAERS Safety Report 23985189 (Version 1)
Quarter: 2024Q2

REPORT INFORMATION
  Report Type: Spontaneous
  Country: CN (occurrence: CN)
  Receive Date: 20240618
  Receipt Date: 20240618
  Transmission Date: 20240716
  Serious: Yes (Other)
  Sender: FDA-Public Use
  Company Number: CN-MYLANLABS-2024M1054505

PATIENT
  Age: 78 Year
  Sex: Male

DRUGS (6)
  1. LIPITOR [Suspect]
     Active Substance: ATORVASTATIN CALCIUM
     Indication: Lipids abnormal
     Dosage: 20 MILLIGRAM, QD
     Route: 048
     Dates: start: 20240503, end: 20240513
  2. LIPITOR [Suspect]
     Active Substance: ATORVASTATIN CALCIUM
     Indication: Arteriosclerosis
  3. PROTEIN HYDROLYSATE [Suspect]
     Active Substance: PROTEIN HYDROLYSATE
     Indication: Cerebrovascular disorder
     Dosage: 60 MILLIGRAM, QD
     Route: 042
     Dates: start: 20240503, end: 20240513
  4. HERBALS [Suspect]
     Active Substance: HERBALS
     Indication: Ill-defined disorder
     Dosage: 50 MILLILITER, QD
     Route: 042
     Dates: start: 20240503, end: 20240512
  5. GINKGO [Suspect]
     Active Substance: GINKGO
     Indication: Haemorrhagic disorder
     Dosage: 20 MILLILITER, QD
     Route: 042
     Dates: start: 20240503, end: 20240513
  6. ASPIRIN\DIHYDROXYALUMINUM AMINOACETATE\MAGNESIUM CARBONATE [Suspect]
     Active Substance: ASPIRIN\DIHYDROXYALUMINUM AMINOACETATE\MAGNESIUM CARBONATE
     Indication: Antiplatelet therapy
     Dosage: 114 MILLIGRAM, QD
     Route: 048
     Dates: start: 20240503, end: 20240513

REACTIONS (1)
  - Myelosuppression [Recovering/Resolving]

NARRATIVE: CASE EVENT DATE: 20240513
